FAERS Safety Report 6172090-X (Version None)
Quarter: 2009Q2

REPORT INFORMATION
  Report Type: 
  Country: None (occurrence: None)
  Receive Date: 20090429
  Receipt Date: 20090424
  Transmission Date: 20091009
  Serious: Yes (Death)
  Sender: FDA-Public Use
  Company Number: JP-B.I. PHARMACEUTICALS,INC./RIDGEFIELD-2009-DE-03375GD

PATIENT
  Age: 5 Year
  Sex: Male

DRUGS (5)
  1. DIPYRIDAMOLE [Suspect]
     Indication: KAWASAKI'S DISEASE
  2. ACETYLSALICYLIC ACID [Suspect]
     Indication: KAWASAKI'S DISEASE
     Route: 048
  3. ULINASTATIN [Suspect]
     Indication: KAWASAKI'S DISEASE
  4. HEPARIN [Suspect]
     Indication: KAWASAKI'S DISEASE
  5. POLYGAM S/D [Suspect]
     Indication: KAWASAKI'S DISEASE
     Route: 042

REACTIONS (5)
  - ANEURYSM RUPTURED [None]
  - CARDIAC ARREST [None]
  - CARDIAC TAMPONADE [None]
  - DISEASE PROGRESSION [None]
  - DRUG INEFFECTIVE [None]
